FAERS Safety Report 9714297 (Version 2)
Quarter: 2013Q4

REPORT INFORMATION
  Report Type: Spontaneous
  Country: US (occurrence: US)
  Receive Date: 20131126
  Receipt Date: 20131126
  Transmission Date: 20140711
  Serious: Yes (Hospitalization)
  Sender: FDA-Public Use
  Company Number: US-GILEAD-2008-0019332

PATIENT
  Sex: Female
  Weight: 74.84 kg

DRUGS (9)
  1. LETAIRIS [Suspect]
     Indication: PULMONARY ARTERIAL HYPERTENSION
     Route: 048
     Dates: start: 20080212
  2. LETAIRIS [Suspect]
     Route: 048
  3. REVATIO [Concomitant]
     Route: 048
  4. IMDUR [Concomitant]
     Route: 048
  5. LISINOPRIL [Concomitant]
     Route: 048
  6. ALBUTEROL INHALER [Concomitant]
     Route: 055
  7. NITROGLYCERIN [Concomitant]
     Route: 048
  8. LANTUS [Concomitant]
     Dosage: 100 U/ML
     Route: 058
  9. RESTORIL [Concomitant]
     Route: 048

REACTIONS (1)
  - Fluid overload [Unknown]
